FAERS Safety Report 6772748 (Version 3)
Quarter: 2017Q3

REPORT INFORMATION
  Report Type: Report from Study
  Country: JP (occurrence: JP)
  Receive Date: 20080926
  Receipt Date: 20170707
  Transmission Date: 20171128
  Serious: Yes (Death, Hospitalization, Other)
  Sender: FDA-Public Use
  Company Number: JP-BRISTOL-MYERS SQUIBB COMPANY-14347355

PATIENT
  Age: 45 Year
  Sex: Female

DRUGS (3)
  1. OXYCONTIN [Concomitant]
     Active Substance: OXYCODONE HYDROCHLORIDE
     Indication: PRODUCT USED FOR UNKNOWN INDICATION
     Dosage: 20 MG, BID
     Route: 048
     Dates: start: 20080428, end: 20080910
  2. PACLITAXEL. [Suspect]
     Active Substance: PACLITAXEL
     Indication: CERVIX CARCINOMA
     Dosage: STARTED ON 17JUN08;THERAPY DUR:3 DAYS
     Route: 041
     Dates: start: 20080812, end: 20080812
  3. NEDAPLATIN [Suspect]
     Active Substance: NEDAPLATIN
     Indication: CERVIX CARCINOMA
     Dosage: STARTED ON 17JUN08;THERAPY DUR:3 DAYS
     Route: 041
     Dates: start: 20080812, end: 20080812

REACTIONS (4)
  - Vomiting [Recovered/Resolved]
  - Nausea [Recovered/Resolved]
  - Decreased appetite [Recovered/Resolved]
  - Tumour haemorrhage [Fatal]

NARRATIVE: CASE EVENT DATE: 20080910
